FAERS Safety Report 7912450-7 (Version None)
Quarter: 2011Q4

REPORT INFORMATION
  Report Type: 
  Country: None (occurrence: None)
  Receive Date: 20111114
  Receipt Date: 20111108
  Transmission Date: 20120403
  Serious: Yes (Hospitalization, Other)
  Sender: FDA-Public Use
  Company Number: GB-TEVA-308573ISR

PATIENT
  Age: 77 Year
  Sex: Female

DRUGS (1)
  1. RISEDRONIC ACID [Suspect]
     Route: 048
     Dates: start: 20110923

REACTIONS (1)
  - DIVERTICULITIS [None]
